FAERS Safety Report 8822256 (Version 2)
Quarter: 2013Q1

REPORT INFORMATION
  Report Type: Spontaneous
  Country: US (occurrence: US)
  Receive Date: 20121003
  Receipt Date: 20130307
  Transmission Date: 20140127
  Serious: No
  Sender: FDA-Public Use
  Company Number: US-009507513-1209USA006453

PATIENT
  Sex: Male

DRUGS (1)
  1. PROSCAR [Suspect]
     Indication: PROSTATISM
     Dosage: UNK
     Route: 048
     Dates: start: 2008, end: 201207

REACTIONS (1)
  - Prostatomegaly [Not Recovered/Not Resolved]
